FAERS Safety Report 8756906 (Version 1)
Quarter: 2012Q4

REPORT INFORMATION
  Report Type: 
  Country: FR (occurrence: FR)
  Receive Date: 20120828
  Receipt Date: 20120828
  Transmission Date: 20130627
  Serious: Yes (Hospitalization)
  Sender: FDA-Public Use
  Company Number: FR-PFIZER INC-2012207140

PATIENT
  Age: 67 Year
  Sex: Male

DRUGS (9)
  1. FLUCONAZOLE [Suspect]
     Indication: FUNGAL INFECTION
     Route: 048
     Dates: start: 20120604, end: 20120610
  2. TOPALGIC [Suspect]
     Indication: PAIN IN EXTREMITY
     Route: 048
     Dates: start: 20120530, end: 20120608
  3. ERTAPENEM [Suspect]
     Indication: OSTEITIS
     Route: 042
     Dates: start: 20120601, end: 20120611
  4. DITROPAN [Suspect]
     Indication: URINARY INCONTINENCE
     Route: 048
     Dates: start: 20120602, end: 20120608
  5. ZOLPIDEM [Suspect]
     Indication: INSOMNIA
     Route: 065
     Dates: start: 20120521, end: 20120610
  6. AMIKACIN [Concomitant]
     Indication: PRODUCT USED FOR UNKNOWN INDICATION
     Route: 065
     Dates: start: 20120521, end: 20120610
  7. CIPROFLOXACIN [Concomitant]
     Indication: PRODUCT USED FOR UNKNOWN INDICATION
     Route: 065
     Dates: start: 20120601
  8. CEFEPIME [Concomitant]
     Indication: PRODUCT USED FOR UNKNOWN INDICATION
     Route: 065
  9. BACTRIM [Concomitant]
     Indication: FUNGAL INFECTION
     Route: 048
     Dates: start: 20120601

REACTIONS (4)
  - Confusional state [Recovered/Resolved]
  - Insomnia [Recovered/Resolved]
  - Agitation [Recovered/Resolved]
  - Hypokinesia [Recovered/Resolved]
